FAERS Safety Report 8563782-3 (Version None)
Quarter: 2012Q3

REPORT INFORMATION
  Report Type: 
  Country: None (occurrence: None)
  Receive Date: 20120803
  Receipt Date: 20120723
  Transmission Date: 20120928
  Serious: Yes (Hospitalization, Other)
  Sender: FDA-Public Use
  Company Number: US-MSD-1207USA007846

PATIENT

DRUGS (5)
  1. REBIF [Suspect]
     Dosage: 22 MICROGRAM, 3 IN 1 WK
     Route: 058
     Dates: start: 20120401
  2. REBIF [Suspect]
     Indication: MULTIPLE SCLEROSIS
     Dosage: 44 MICROGRAM, 3 IN 1 WK
     Route: 058
     Dates: start: 20100106, end: 20110401
  3. LIPITOR [Suspect]
     Indication: BLOOD CHOLESTEROL INCREASED
     Dosage: UNK
     Dates: end: 20110201
  4. TEGRETOL [Concomitant]
  5. ZOCOR [Suspect]
     Indication: BLOOD CHOLESTEROL INCREASED
     Dosage: UNK
     Dates: end: 20110201

REACTIONS (3)
  - INJECTION SITE REACTION [None]
  - MULTIPLE SCLEROSIS RELAPSE [None]
  - HEPATIC FIBROSIS [None]
